FAERS Safety Report 7957592-5 (Version None)
Quarter: 2011Q4

REPORT INFORMATION
  Report Type: 
  Country: None (occurrence: None)
  Receive Date: 20111205
  Receipt Date: 20111201
  Transmission Date: 20120403
  Serious: Yes (Hospitalization)
  Sender: FDA-Public Use
  Company Number: CA-GLAXOSMITHKLINE-Z0006694A

PATIENT
  Sex: Male
  Weight: 56 kg

DRUGS (8)
  1. AZITHROMYCIN [Concomitant]
     Indication: INFECTION PROPHYLAXIS
     Dosage: 500MG PER DAY
     Route: 048
     Dates: start: 20101122, end: 20101126
  2. CEFTRIAXONE [Concomitant]
     Indication: INFECTION PROPHYLAXIS
     Dosage: 1G PER DAY
     Route: 042
     Dates: start: 20101122, end: 20101128
  3. VANCOMYCIN [Concomitant]
     Dosage: 1G TWICE PER DAY
     Route: 042
     Dates: start: 20101119, end: 20101119
  4. ACETAMINOPHEN [Concomitant]
     Dosage: 500MG SIX TIMES PER DAY
     Route: 048
     Dates: start: 20101117, end: 20101126
  5. CHLORAMBUCIL [Suspect]
     Indication: CHRONIC LYMPHOCYTIC LEUKAEMIA
     Route: 048
     Dates: start: 20101020
  6. ACETAMINOPHEN [Concomitant]
     Dosage: 1000MG FOUR TIMES PER DAY
     Route: 048
     Dates: start: 20101125, end: 20101127
  7. VANCOMYCIN [Concomitant]
     Indication: INFECTION PROPHYLAXIS
     Dosage: 1G TWICE PER DAY
     Route: 042
     Dates: start: 20101128, end: 20101129
  8. ACETAMINOPHEN [Concomitant]
     Dosage: 1000MG FOUR TIMES PER DAY
     Route: 048
     Dates: start: 20101126

REACTIONS (2)
  - HAEMOLYSIS [None]
  - PLEURAL EFFUSION [None]
